FAERS Safety Report 9436547 (Version 1)
Quarter: 2013Q3

REPORT INFORMATION
  Report Type: Spontaneous
  Country: US (occurrence: US)
  Receive Date: 20130802
  Receipt Date: 20130802
  Transmission Date: 20140515
  Serious: No
  Sender: FDA-Public Use
  Company Number: US-OPTIMER-20130138

PATIENT
  Age: 32 Year
  Sex: Female
  Weight: 99.32 kg

DRUGS (2)
  1. DIFICID [Suspect]
     Indication: CLOSTRIDIUM DIFFICILE COLITIS
     Dosage: 200 MG, BID
     Route: 048
     Dates: start: 20130409, end: 20130418
  2. DIFICID [Suspect]
     Dosage: 200 MG, BID
     Route: 048
     Dates: start: 2013

REACTIONS (2)
  - Clostridium difficile infection [Unknown]
  - Disease recurrence [Unknown]
